FAERS Safety Report 6735123-5 (Version None)
Quarter: 2010Q2

REPORT INFORMATION
  Report Type: 
  Country: None (occurrence: None)
  Receive Date: 20100519
  Receipt Date: 20100519
  Transmission Date: 20101027
  Serious: Yes (Other)
  Sender: FDA-Public Use
  Company Number: None

PATIENT
  Age: 9 Month
  Sex: Male
  Weight: 10.5 kg

DRUGS (1)
  1. BABY ORAJEL BENZOCAINE 7.5% CHURCH + DWIGHT CO., INC. [Suspect]
     Indication: TEETHING
     Dosage: PEA SIZE DROP ONCE AT NIGHT 1X PER DAY APPLIED TO UPPER GUMS FOR TEETHING 2X PER WEEK AS NECESSARY

REACTIONS (4)
  - CRYING [None]
  - DISCOMFORT [None]
  - SWOLLEN TONGUE [None]
  - TONGUE DISCOLOURATION [None]
